FAERS Safety Report 10018755 (Version 1)
Quarter: 2014Q1

REPORT INFORMATION
  Report Type: Spontaneous
  Country: US (occurrence: None)
  Receive Date: 20140314
  Receipt Date: 20140314
  Transmission Date: 20141002
  Serious: Yes (Disabling)
  Sender: FDA-Public Use
  Company Number: None

PATIENT
  Age: 52 Year
  Sex: Female
  Weight: 72.58 kg

DRUGS (1)
  1. ESCITALOPRAM [Suspect]
     Indication: DEPRESSION
     Dosage: 1 1/2 PILLS ONCE DAILY TAKEN BY MOUTH
     Route: 048
     Dates: start: 20131012, end: 20140313

REACTIONS (10)
  - Product substitution issue [None]
  - Depression [None]
  - Quality of life decreased [None]
  - Impaired work ability [None]
  - Depressed mood [None]
  - Anhedonia [None]
  - Movement disorder [None]
  - Irritability [None]
  - Drug withdrawal syndrome [None]
  - Drug ineffective [None]
